FAERS Safety Report 5931895-8 (Version None)
Quarter: 2008Q4

REPORT INFORMATION
  Report Type: 
  Country: None (occurrence: None)
  Receive Date: 20081027
  Receipt Date: 20081015
  Transmission Date: 20090506
  Serious: Yes (Other)
  Sender: FDA-Public Use
  Company Number: CH-PFIZER INC-2008087747

PATIENT
  Age: 65 Year
  Sex: Female

DRUGS (2)
  1. FLUCONAZOLE [Suspect]
     Indication: CANDIDIASIS
     Dosage: DAILY DOSE:800MG
  2. SIMVASTATIN [Suspect]
     Dosage: DAILY DOSE:40MG

REACTIONS (1)
  - RHABDOMYOLYSIS [None]
